FAERS Safety Report 5650379-8 (Version None)
Quarter: 2008Q1

REPORT INFORMATION
  Report Type: 
  Country: None (occurrence: None)
  Receive Date: 20080305
  Receipt Date: 20080229
  Transmission Date: 20080703
  Serious: Yes (Other)
  Sender: FDA-Public Use
  Company Number: JP-BRISTOL-MYERS SQUIBB COMPANY-14095418

PATIENT

DRUGS (2)
  1. VEPESID [Suspect]
     Indication: EWING'S SARCOMA
     Route: 041
  2. IFOMIDE [Concomitant]
     Route: 042

REACTIONS (1)
  - BLOOD CREATINE PHOSPHOKINASE INCREASED [None]
